FAERS Safety Report 5131505-6 (Version None)
Quarter: 2006Q4

REPORT INFORMATION
  Report Type: 
  Country: None (occurrence: None)
  Receive Date: 20061020
  Receipt Date: 20061012
  Transmission Date: 20070319
  Serious: Yes (Death, Hospitalization, Disabling)
  Sender: FDA-Public Use
  Company Number: CG-MERCK-0610USA09962

PATIENT
  Age: 80 Year
  Sex: Male

DRUGS (1)
  1. STROMECTOL [Suspect]
     Route: 048
     Dates: start: 20060128, end: 20060128

REACTIONS (5)
  - ADVERSE EVENT [None]
  - ASTHENIA [None]
  - COMA [None]
  - DEATH [None]
  - OCULAR HYPERAEMIA [None]
